FAERS Safety Report 7334578-5 (Version None)
Quarter: 2011Q1

REPORT INFORMATION
  Report Type: 
  Country: None (occurrence: None)
  Receive Date: 20110307
  Receipt Date: 20101004
  Transmission Date: 20110831
  Serious: No
  Sender: FDA-Public Use
  Company Number: A0884770A

PATIENT
  Age: 62 Year
  Sex: Male

DRUGS (4)
  1. REQUIP [Suspect]
     Indication: RESTLESS LEGS SYNDROME
     Dosage: 1MG PER DAY
     Route: 048
     Dates: start: 20050101
  2. AMBIEN [Concomitant]
  3. CRESTOR [Concomitant]
  4. PAROXETINE HCL [Concomitant]

REACTIONS (3)
  - SOMNOLENCE [None]
  - DRUG INEFFECTIVE [None]
  - INSOMNIA [None]
